FAERS Safety Report 8862459 (Version 2)
Quarter: 2012Q4

REPORT INFORMATION
  Report Type: 
  Country: US (occurrence: US)
  Receive Date: 20121026
  Receipt Date: 20121129
  Transmission Date: 20130627
  Serious: Yes (Hospitalization, Other)
  Sender: FDA-Public Use
  Company Number: US-UCBSA-069462

PATIENT
  Age: 69 Year
  Sex: Female
  Weight: 77.11 kg

DRUGS (6)
  1. VIMPAT [Suspect]
     Indication: CONVULSION
     Dosage: DAY TIME AND  NIGHT TIME
     Route: 048
     Dates: start: 20121018, end: 20121019
  2. LISINOPRIL [Concomitant]
     Indication: BLOOD PRESSURE
     Dosage: IN MORNING
     Route: 048
  3. SIMVASTATIN [Concomitant]
     Indication: BLOOD CHOLESTEROL
     Dosage: AT NIGHT
  4. RECONON [Concomitant]
     Indication: HEART RATE IRREGULAR
     Route: 048
  5. DILTIAZEM [Concomitant]
     Indication: HEART RATE IRREGULAR
     Dosage: ONCE A DAY IN MORNING
     Route: 048
  6. DILTIAZEM [Concomitant]
     Indication: HEART RATE IRREGULAR
     Dosage: DAILY DOSE: 120MG
     Dates: start: 20121030

REACTIONS (3)
  - Bradycardia [Recovered/Resolved]
  - Tremor [Unknown]
  - Feeling abnormal [Unknown]
